FAERS Safety Report 21405639 (Version 2)
Quarter: 2022Q4

REPORT INFORMATION
  Report Type: Spontaneous
  Country: US (occurrence: US)
  Receive Date: 20221004
  Receipt Date: 20221019
  Transmission Date: 20230112
  Serious: No
  Sender: FDA-Public Use
  Company Number: US-GSK-US2022138553

PATIENT
  Sex: Female

DRUGS (1)
  1. NUCALA [Suspect]
     Active Substance: MEPOLIZUMAB
     Indication: Asthma
     Dosage: 100 MG, Z (EVERY 28 DAYS)
     Dates: start: 20220913

REACTIONS (4)
  - Headache [Unknown]
  - Dyspnoea [Unknown]
  - Dysphonia [Unknown]
  - Blood pressure increased [Unknown]
